FAERS Safety Report 23635611 (Version 1)
Quarter: 2024Q1

REPORT INFORMATION
  Report Type: Spontaneous
  Country: GB (occurrence: GB)
  Receive Date: 20240315
  Receipt Date: 20240315
  Transmission Date: 20240410
  Serious: Yes (Other)
  Sender: FDA-Public Use
  Company Number: GB-UCBSA-2023020217

PATIENT
  Age: 75 Year
  Sex: Female
  Weight: 84 kg

DRUGS (25)
  1. APIXABAN [Suspect]
     Active Substance: APIXABAN
     Indication: Cerebrovascular accident prophylaxis
     Dosage: DOSAGE TEXT: 10 MILLIGRAM, QD
     Route: 065
     Dates: start: 20180207
  2. ESOMEPRAZOLE MAGNESIUM [Suspect]
     Active Substance: ESOMEPRAZOLE\ESOMEPRAZOLE MAGNESIUM\ESOMEPRAZOLE MAGNESIUM DIHYDRATE
     Indication: Reflux laryngitis
     Dosage: DOSAGE TEXT: 40 MILLIGRAM, ONCE DAILY (QD)
     Route: 065
  3. FELODIPINE [Suspect]
     Active Substance: FELODIPINE
     Indication: Blood pressure abnormal
     Dosage: DOSAGE TEXT: UNK
     Route: 065
  4. HYDROCHLOROTHIAZIDE [Suspect]
     Active Substance: HYDROCHLOROTHIAZIDE
     Indication: Product used for unknown indication
     Dosage: DOSAGE TEXT: 2 MILLIGRAM
     Route: 048
  5. IMDUR [Suspect]
     Active Substance: ISOSORBIDE MONONITRATE
     Indication: Product used for unknown indication
     Dosage: DOSAGE TEXT: 50 MILLIGRAM, QD
     Route: 048
  6. ISOSORBIDE DINITRATE [Suspect]
     Active Substance: ISOSORBIDE DINITRATE
     Indication: Product used for unknown indication
     Dosage: DOSAGE TEXT: 50 MILLIGRAM, QD
     Route: 048
  7. ISOSORBIDE MONONITRATE [Suspect]
     Active Substance: ISOSORBIDE MONONITRATE
     Indication: Product used for unknown indication
     Dosage: DOSAGE TEXT: 50 MILLIGRAM
     Route: 048
  8. LANSOPRAZOLE [Suspect]
     Active Substance: LANSOPRAZOLE
     Indication: Atrial fibrillation
     Dosage: DOSAGE TEXT: 30 MILLIGRAM, QD
     Route: 065
  9. LANSOPRAZOLE [Suspect]
     Active Substance: LANSOPRAZOLE
     Indication: Atrial fibrillation
     Dosage: DOSAGE TEXT: UNK UNK, QD
     Route: 065
     Dates: start: 20210628
  10. LEVOTHYROXINE SODIUM [Suspect]
     Active Substance: LEVOTHYROXINE SODIUM
     Indication: Product used for unknown indication
     Dosage: DOSAGE TEXT: 12 MICROGRAM, QD
     Route: 065
  11. NAPROXEN [Suspect]
     Active Substance: NAPROXEN
     Indication: Product used for unknown indication
     Dosage: DOSAGE TEXT: UNK
     Route: 065
  12. SIMVASTATIN [Suspect]
     Active Substance: SIMVASTATIN
     Indication: Product used for unknown indication
     Dosage: DOSAGE TEXT: 40 MILLIGRAM, QD
     Route: 048
  13. SIMVASTATIN [Suspect]
     Active Substance: SIMVASTATIN
     Indication: Product used for unknown indication
     Dosage: DOSAGE TEXT: UNK UNK, QD
     Route: 065
     Dates: start: 20221123
  14. AMITRIPTYLINE HYDROCHLORIDE [Concomitant]
     Active Substance: AMITRIPTYLINE HYDROCHLORIDE
     Indication: Product used for unknown indication
     Dosage: DOSAGE TEXT: UNK
     Dates: start: 20221123
  15. BENDROFLUMETHIAZIDE [Concomitant]
     Active Substance: BENDROFLUMETHIAZIDE
     Indication: Product used for unknown indication
     Dosage: DOSAGE TEXT: UNK UNK, QD
     Dates: start: 20221123
  16. BISOPROLOL [Concomitant]
     Active Substance: BISOPROLOL\BISOPROLOL FUMARATE
     Indication: Product used for unknown indication
     Dosage: DOSAGE TEXT: UNK UNK, QD
     Dates: start: 20230301
  17. FOSFOMYCIN [Concomitant]
     Active Substance: FOSFOMYCIN
     Indication: Product used for unknown indication
     Dosage: DOSAGE TEXT: UNK
     Dates: start: 20230227, end: 20230228
  18. LEVOTHYROXINE [Concomitant]
     Active Substance: LEVOTHYROXINE\LEVOTHYROXINE SODIUM
     Indication: Ill-defined disorder
     Dosage: DOSAGE TEXT: UNK UNK, QD
     Dates: start: 20210628
  19. OMEPRAZOLE [Concomitant]
     Active Substance: OMEPRAZOLE
     Indication: Product used for unknown indication
     Dosage: DOSAGE TEXT: UNK UNK, QD
     Dates: start: 20221123
  20. BISOPROLOL FUMARATE [Suspect]
     Active Substance: BISOPROLOL FUMARATE
     Indication: Cerebrovascular accident prophylaxis
     Dosage: DOSAGE TEXT: 10 MILLIGRAM, ONCE DAILY (QD)
     Route: 065
  21. CANDESARTAN [Suspect]
     Active Substance: CANDESARTAN
     Indication: Product used for unknown indication
     Dosage: DOSAGE TEXT: UNK
     Route: 065
     Dates: start: 20220222
  22. CANDESARTAN CILEXETIL [Suspect]
     Active Substance: CANDESARTAN CILEXETIL
     Indication: Product used for unknown indication
     Dosage: DOSAGE TEXT: UNK
     Route: 065
     Dates: start: 20220222
  23. CETIRIZINE [Suspect]
     Active Substance: CETIRIZINE HYDROCHLORIDE
     Indication: Product used for unknown indication
     Dosage: DOSAGE TEXT: 10 MILLIGRAM, QD, PRODUCT REPORTED : CETIRIZINE HYDROCHLORIDE
     Route: 048
  24. DAPAGLIFLOZIN [Suspect]
     Active Substance: DAPAGLIFLOZIN
     Indication: Ill-defined disorder
     Dosage: DOSAGE TEXT: 10 MILLIGRAM, QD
     Route: 048
     Dates: start: 20230217
  25. DIGOXIN [Suspect]
     Active Substance: DIGOXIN
     Indication: Cerebrovascular accident prophylaxis
     Dosage: DOSAGE TEXT: 63 MICROGRAM, QD
     Route: 065

REACTIONS (62)
  - Subarachnoid haemorrhage [Recovered/Resolved with Sequelae]
  - Angioedema [Recovered/Resolved]
  - Hallucination [Recovered/Resolved]
  - Abdominal discomfort [Recovered/Resolved]
  - Headache [Not Recovered/Not Resolved]
  - COVID-19 [Recovered/Resolved with Sequelae]
  - Tinnitus [Not Recovered/Not Resolved]
  - Pain of skin [Recovered/Resolved]
  - Peripheral swelling [Recovered/Resolved]
  - Disturbance in attention [Recovered/Resolved]
  - Cognitive disorder [Recovered/Resolved]
  - Visual impairment [Not Recovered/Not Resolved]
  - Diplopia [Not Recovered/Not Resolved]
  - Pruritus genital [Recovered/Resolved]
  - Sleep terror [Recovered/Resolved]
  - Vomiting [Recovered/Resolved]
  - Cardiospasm [Not Recovered/Not Resolved]
  - Dyspnoea [Unknown]
  - Atrial tachycardia [Not Recovered/Not Resolved]
  - Anxiety [Not Recovered/Not Resolved]
  - Muscular weakness [Unknown]
  - Blindness [Not Recovered/Not Resolved]
  - Heart rate increased [Unknown]
  - Muscle twitching [Unknown]
  - Abdominal pain upper [Not Recovered/Not Resolved]
  - Dehydration [Unknown]
  - Hyperhidrosis [Unknown]
  - Rash papular [Recovering/Resolving]
  - Lip swelling [Recovering/Resolving]
  - Pruritus [Recovering/Resolving]
  - Palmoplantar keratoderma [Not Recovered/Not Resolved]
  - Dry skin [Not Recovered/Not Resolved]
  - Ventricular tachycardia [Not Recovered/Not Resolved]
  - Chest pain [Unknown]
  - Palpitations [Unknown]
  - Tachycardia [Unknown]
  - Pain [Recovered/Resolved]
  - Anosmia [Recovered/Resolved]
  - Eye pruritus [Recovered/Resolved]
  - Facial pain [Recovered/Resolved]
  - Back pain [Unknown]
  - Blood glucose increased [Unknown]
  - Amnesia [Not Recovered/Not Resolved]
  - Carotid artery occlusion [Recovered/Resolved with Sequelae]
  - Alopecia [Recovered/Resolved with Sequelae]
  - Pyrexia [Recovered/Resolved]
  - Tension headache [Not Recovered/Not Resolved]
  - Migraine [Not Recovered/Not Resolved]
  - Malaise [Unknown]
  - Diarrhoea [Recovered/Resolved]
  - Nausea [Recovered/Resolved]
  - Dizziness [Recovered/Resolved]
  - Arthralgia [Recovered/Resolved]
  - Memory impairment [Recovering/Resolving]
  - Vasculitis [Not Recovered/Not Resolved]
  - Fatigue [Recovered/Resolved]
  - Feeling abnormal [Unknown]
  - Insomnia [Unknown]
  - Intentional product misuse [Unknown]
  - Transient ischaemic attack [Recovered/Resolved]
  - Myocardial infarction [Recovered/Resolved with Sequelae]
  - Pericarditis [Not Recovered/Not Resolved]

NARRATIVE: CASE EVENT DATE: 20210209
